FAERS Safety Report 5766136-8 (Version None)
Quarter: 2008Q2

REPORT INFORMATION
  Report Type: 
  Country: None (occurrence: None)
  Receive Date: 20080605
  Receipt Date: 20080514
  Transmission Date: 20081010
  Serious: Yes (Death)
  Sender: FDA-Public Use
  Company Number: S08-SWI-01994-01

PATIENT
  Age: 43 Year
  Sex: Female

DRUGS (3)
  1. ESCITALOPRAM [Suspect]
     Dosage: 30 MG QD PO
     Route: 048
     Dates: start: 20060901, end: 20071101
  2. SEROQUEL [Suspect]
     Dosage: 400 MG QD PO
     Route: 048
     Dates: start: 20070101, end: 20071101
  3. CHLORALDURAT (CHORAL HYDRATE) [Suspect]
     Dosage: 500 MG QD PO
     Route: 048
     Dates: start: 20070501, end: 20071101

REACTIONS (7)
  - ASPIRATION [None]
  - CARDIAC ARREST [None]
  - CYANOSIS [None]
  - OVERDOSE [None]
  - PULSE ABSENT [None]
  - RESPIRATORY ARREST [None]
  - UNRESPONSIVE TO STIMULI [None]
